FAERS Safety Report 5309361-2 (Version None)
Quarter: 2007Q2

REPORT INFORMATION
  Report Type: 
  Country: None (occurrence: None)
  Receive Date: 20070425
  Receipt Date: 20070425
  Transmission Date: 20071010
  Serious: Yes (Hospitalization)
  Sender: FDA-Public Use
  Company Number: None

PATIENT
  Sex: Female

DRUGS (1)
  1. IBANDRONATE 150MG BONIVA [Suspect]
     Indication: OSTEOPOROSIS
     Dosage: GIVEN ONCE P.E.
     Dates: start: 20070127

REACTIONS (1)
  - SPINAL OSTEOARTHRITIS [None]
